FAERS Safety Report 6677541-X (Version None)
Quarter: 2010Q2

REPORT INFORMATION
  Report Type: 
  Country: None (occurrence: None)
  Receive Date: 20100412
  Receipt Date: 20100211
  Transmission Date: 20101027
  Serious: No
  Sender: FDA-Public Use
  Company Number: US-ALEXION-A201000168

PATIENT
  Sex: Female

DRUGS (5)
  1. SOLIRIS [Suspect]
     Indication: PAROXYSMAL NOCTURNAL HAEMOGLOBINURIA
     Dosage: 600 MG, QWK
     Route: 042
     Dates: start: 20080328, end: 20080418
  2. SOLIRIS [Suspect]
     Dosage: 900 MG, Q2WK
     Route: 042
     Dates: start: 20080425
  3. WARFARIN [Concomitant]
     Indication: VENOUS THROMBOSIS
     Dosage: 10 MG, QD
  4. SYNTHROID [Concomitant]
  5. FOLIC ACID [Concomitant]

REACTIONS (6)
  - BLOOD LACTATE DEHYDROGENASE INCREASED [None]
  - CONTUSION [None]
  - HAEMOGLOBIN DECREASED [None]
  - MOOD ALTERED [None]
  - STRESS [None]
  - VIRAL INFECTION [None]
